FAERS Safety Report 7920757 (Version 3)
Quarter: 2013Q4

REPORT INFORMATION
  Report Type: Spontaneous
  Country: US (occurrence: US)
  Receive Date: 20110429
  Receipt Date: 20131120
  Transmission Date: 20140711
  Serious: Yes (Other)
  Sender: FDA-Public Use
  Company Number: US-ASTRAZENECA-2010SE20950

PATIENT
  Age: 42 Year
  Sex: Female
  Weight: 68.9 kg

DRUGS (6)
  1. NEXIUM [Suspect]
     Indication: HELICOBACTER INFECTION
     Route: 048
     Dates: start: 2006, end: 201307
  2. NEXIUM [Suspect]
     Indication: GASTROOESOPHAGEAL REFLUX DISEASE
     Route: 048
     Dates: start: 2006, end: 201307
  3. NEXIUM [Suspect]
     Indication: HELICOBACTER INFECTION
     Route: 048
     Dates: start: 20131022
  4. NEXIUM [Suspect]
     Indication: GASTROOESOPHAGEAL REFLUX DISEASE
     Route: 048
     Dates: start: 20131022
  5. ZOLOFT [Concomitant]
     Indication: ANXIETY DISORDER
     Route: 048
     Dates: start: 2002
  6. EPIPEN [Concomitant]
     Indication: MULTIPLE ALLERGIES
     Dosage: PRN

REACTIONS (11)
  - Breast cancer [Unknown]
  - Cervix carcinoma [Unknown]
  - Gastrooesophageal reflux disease [Unknown]
  - Fibromyalgia [Unknown]
  - Rheumatoid arthritis [Unknown]
  - Scoliosis [Unknown]
  - Pain [Unknown]
  - Dyspepsia [Unknown]
  - Helicobacter infection [Unknown]
  - Malaise [Unknown]
  - Drug dose omission [Unknown]
